FAERS Safety Report 13226228 (Version 4)
Quarter: 2017Q2

REPORT INFORMATION
  Report Type: Spontaneous
  Country: US (occurrence: US)
  Receive Date: 20170213
  Receipt Date: 20170413
  Transmission Date: 20170830
  Serious: No
  Sender: FDA-Public Use
  Company Number: US-PFIZER INC-2017058729

PATIENT
  Age: 45 Year
  Sex: Female

DRUGS (26)
  1. DICLOFENAC SODIUM. [Concomitant]
     Active Substance: DICLOFENAC SODIUM
     Indication: MUSCULOSKELETAL DISCOMFORT
     Dosage: UNK, AS NEEDED
     Route: 061
  2. PHENERGAN [Concomitant]
     Active Substance: PROMETHAZINE HYDROCHLORIDE
     Indication: NAUSEA
     Dosage: 25 MG, AS NEEDED (25 MG 1 PO PRN)
     Route: 048
  3. NYSTATIN. [Concomitant]
     Active Substance: NYSTATIN
     Indication: FUNGAL INFECTION
     Dosage: 100,000 USP
  4. TROKENDI [Concomitant]
     Active Substance: TOPIRAMATE
     Dosage: 50 MG, 2X/DAY
     Route: 048
  5. ATENOLOL. [Concomitant]
     Active Substance: ATENOLOL
     Indication: MIGRAINE PROPHYLAXIS
     Dosage: 50 MG, 2X/DAY (25 MG 2 PO BID)
     Route: 048
  6. RELPAX [Concomitant]
     Active Substance: ELETRIPTAN HYDROBROMIDE
     Indication: MIGRAINE
     Dosage: 40 MG, AS NEEDED (40 MG 1 PO PRN )
     Route: 048
  7. ZOFRAN [Concomitant]
     Active Substance: ONDANSETRON HYDROCHLORIDE
     Indication: MIGRAINE
  8. NEXIUM [Concomitant]
     Active Substance: ESOMEPRAZOLE MAGNESIUM
     Dosage: UNK, AS NEEDED
     Route: 048
  9. LIDOCAINE. [Concomitant]
     Active Substance: LIDOCAINE
     Dosage: APPLY UP TO 3 TO AA 12 DEGREE ON/ 12 DEGREE OFF PRN
  10. INDOCIN [Concomitant]
     Active Substance: INDOMETHACIN
     Indication: MIGRAINE
     Dosage: 50 MG, AS NEEDED (WITH FOOD)
     Route: 048
  11. ZANAFLEX [Concomitant]
     Active Substance: TIZANIDINE HYDROCHLORIDE
     Indication: MUSCLE SPASMS
     Dosage: 12 MG, 2X/DAY (4 MG 3 PO BID)
     Route: 048
  12. VITAMIN D3 [Concomitant]
     Active Substance: CHOLECALCIFEROL
     Dosage: 2000 IU, 1X/DAY
     Route: 048
  13. ALBUTEROL SULFATE HFA [Concomitant]
     Active Substance: ALBUTEROL SULFATE
     Indication: ASPIRATION
     Dosage: 1 - 2 PRN
  14. GABAPENTIN. [Concomitant]
     Active Substance: GABAPENTIN
     Indication: OCCIPITAL NEURALGIA
     Dosage: 75 MG, 2X/DAY
  15. FENTANYL. [Concomitant]
     Active Substance: FENTANYL
     Indication: MUSCULOSKELETAL DISCOMFORT
     Dosage: 25 MCG/H 1 PATCH Q 3 DAYS
  16. TRINTELLIX [Concomitant]
     Active Substance: VORTIOXETINE HYDROBROMIDE
     Indication: DEPRESSION
     Dosage: 10 MG, 1X/DAY (10 MG 1 PO QD)
     Route: 048
  17. NEXIUM [Concomitant]
     Active Substance: ESOMEPRAZOLE MAGNESIUM
     Indication: GASTROOESOPHAGEAL REFLUX DISEASE
     Dosage: 40 MG, ALTERNATE DAY (40 MG 1 PO QOD)
     Route: 048
  18. ALBUTEROL SULFATE HFA [Concomitant]
     Active Substance: ALBUTEROL SULFATE
     Indication: BRONCHITIS CHRONIC
  19. NYSTATIN. [Concomitant]
     Active Substance: NYSTATIN
     Dosage: UNK, AS NEEDED
  20. STADOL NS [Concomitant]
     Active Substance: BUTORPHANOL TARTRATE
     Dosage: 2.5 ML - 10 MG/ML 1 SPRAY TO NOSTRIL PRN
     Route: 045
  21. MAXZIDE [Concomitant]
     Active Substance: HYDROCHLOROTHIAZIDE\TRIAMTERENE
     Indication: OEDEMA PERIPHERAL
     Dosage: 1 DF, 1X/DAY (37.5/25 1 PO QD)
     Route: 048
  22. XANAX [Concomitant]
     Active Substance: ALPRAZOLAM
     Indication: ANXIETY
     Dosage: 2 MG 1 TO 2 PO PRN
     Route: 048
  23. LYRICA [Suspect]
     Active Substance: PREGABALIN
     Dosage: 150 MG, 2X/DAY
     Route: 048
  24. POTASSIUM CL [Concomitant]
     Active Substance: POTASSIUM CHLORIDE
     Dosage: 20 MEQ, 2X/DAY (ER)
     Route: 048
  25. PHENERGAN [Concomitant]
     Active Substance: PROMETHAZINE HYDROCHLORIDE
     Indication: MIGRAINE
  26. ZOFRAN [Concomitant]
     Active Substance: ONDANSETRON HYDROCHLORIDE
     Indication: NAUSEA
     Dosage: 3 MG 1 TO 3 PO PRN
     Route: 048

REACTIONS (2)
  - Malaise [Unknown]
  - Drug ineffective [Recovered/Resolved]
